FAERS Safety Report 8603209 (Version 3)
Quarter: 2012Q4

REPORT INFORMATION
  Report Type: 
  Country: US (occurrence: US)
  Receive Date: 20120607
  Receipt Date: 20121130
  Transmission Date: 20130627
  Serious: Yes (Death, Hospitalization)
  Sender: FDA-Public Use
  Company Number: US-GLAXOSMITHKLINE-A0980293A

PATIENT
  Age: 62 Year
  Sex: Female
  Weight: 59.1 kg

DRUGS (1)
  1. VOTRIENT [Suspect]
     Indication: PRODUCT USED FOR UNKNOWN INDICATION
     Dosage: 1TAB Per day
     Route: 065
     Dates: start: 20120410, end: 20120512

REACTIONS (5)
  - Sarcoma [Fatal]
  - Metastases to spine [Fatal]
  - Respiratory paralysis [Fatal]
  - Paralysis [Fatal]
  - Drug ineffective [Unknown]
